FAERS Safety Report 5052471-8 (Version None)
Quarter: 2006Q3

REPORT INFORMATION
  Report Type: 
  Country: None (occurrence: None)
  Receive Date: 20060717
  Receipt Date: 20060705
  Transmission Date: 20061208
  Serious: Yes (Other)
  Sender: FDA-Public Use
  Company Number: PHEH2006US08609

PATIENT
  Age: 60 Year
  Sex: Female

DRUGS (1)
  1. ZOMETA [Suspect]
     Indication: METASTASES TO BONE
     Dosage: EVERY MONTH
     Dates: start: 20050501, end: 20060401

REACTIONS (4)
  - ABSCESS JAW [None]
  - OSTEONECROSIS [None]
  - PURULENT DISCHARGE [None]
  - SKIN DISCOLOURATION [None]
